FAERS Safety Report 5502461-3 (Version None)
Quarter: 2007Q4

REPORT INFORMATION
  Report Type: 
  Country: None (occurrence: None)
  Receive Date: 20071030
  Receipt Date: 20071022
  Transmission Date: 20080405
  Serious: Yes (Hospitalization)
  Sender: FDA-Public Use
  Company Number: US-PFIZER INC-2007086996

PATIENT
  Sex: Male
  Weight: 66.9 kg

DRUGS (21)
  1. MARAVIROC [Suspect]
     Indication: HIV INFECTION
     Route: 048
  2. ADVAIR DISKUS 100/50 [Concomitant]
     Route: 055
     Dates: start: 20070511
  3. EPIVIR [Concomitant]
     Route: 048
     Dates: start: 20070419, end: 20071002
  4. VIREAD [Concomitant]
     Route: 048
     Dates: start: 20070419
  5. KALETRA [Concomitant]
     Route: 048
     Dates: start: 20070531, end: 20071002
  6. BACTRIM DS [Concomitant]
     Route: 048
     Dates: start: 20070629
  7. TIPRANAVIR [Concomitant]
     Route: 048
     Dates: start: 20071002
  8. CHANTIX [Concomitant]
     Dosage: FREQ:0.5MG BID THEN 1MG BID
     Route: 048
     Dates: start: 20071002
  9. CHANTIX [Concomitant]
  10. AVELOX [Concomitant]
     Route: 048
     Dates: start: 20071003, end: 20071013
  11. LEXAPRO [Concomitant]
     Route: 048
     Dates: start: 20070511
  12. PROCHLORPERAZINE MALEATE [Concomitant]
     Route: 048
     Dates: start: 20070511
  13. VIDEX EC [Concomitant]
     Route: 048
     Dates: start: 20070419, end: 20071002
  14. LEVITRA [Concomitant]
     Route: 048
     Dates: start: 20061009
  15. FAMVIR [Concomitant]
     Route: 048
     Dates: start: 20070716
  16. DIFLUCAN [Concomitant]
     Route: 048
     Dates: start: 20061012
  17. MEGACE [Concomitant]
     Route: 048
     Dates: start: 20061004
  18. LEVSIN [Concomitant]
     Route: 048
     Dates: start: 20070213
  19. ANDRODERM [Concomitant]
     Route: 062
     Dates: start: 20070213
  20. AMOXICILLIN [Concomitant]
     Route: 048
     Dates: start: 20070213
  21. DUONEB [Concomitant]
     Route: 055
     Dates: start: 20070213

REACTIONS (1)
  - SYNCOPE [None]
